FAERS Safety Report 10162456 (Version 3)
Quarter: 2014Q2

REPORT INFORMATION
  Report Type: Spontaneous
  Country: JP (occurrence: JP)
  Receive Date: 20140509
  Receipt Date: 20140603
  Transmission Date: 20141212
  Serious: No
  Sender: FDA-Public Use
  Company Number: JP-SA-2014SA060170

PATIENT
  Sex: 0

DRUGS (2)
  1. MYSLEE [Suspect]
     Indication: INSOMNIA
     Route: 048
  2. MYSLEE [Suspect]
     Indication: INSOMNIA
     Route: 048

REACTIONS (1)
  - Intentional overdose [Unknown]
